FAERS Safety Report 8009015-8 (Version None)
Quarter: 2011Q4

REPORT INFORMATION
  Report Type: 
  Country: None (occurrence: None)
  Receive Date: 20111227
  Receipt Date: 20111223
  Transmission Date: 20120403
  Serious: No
  Sender: FDA-Public Use
  Company Number: US-PFIZER INC-2011312778

PATIENT
  Sex: Female
  Weight: 68.027 kg

DRUGS (2)
  1. SOLU-MEDROL [Suspect]
     Indication: MULTIPLE SCLEROSIS RELAPSE
     Dosage: UNK
     Route: 042
     Dates: start: 20111217, end: 20111217
  2. PROZAC [Concomitant]
     Indication: DEPRESSION
     Dosage: UNK

REACTIONS (4)
  - URTICARIA [None]
  - FLUSHING [None]
  - VOMITING [None]
  - PRURITUS GENERALISED [None]
